FAERS Safety Report 10279521 (Version 2)
Quarter: 2014Q3

REPORT INFORMATION
  Report Type: Spontaneous
  Country: ES (occurrence: None)
  Receive Date: 20140701
  Receipt Date: 20140707
  Transmission Date: 20150326
  Serious: Yes (Death, Hospitalization, Other)
  Sender: FDA-Public Use
  Company Number: ADR-2014-01119

PATIENT
  Age: 37 Year
  Sex: Female

DRUGS (1)
  1. BACLOFEN. [Suspect]
     Active Substance: BACLOFEN
     Indication: MUSCLE SPASTICITY

REACTIONS (9)
  - Tachycardia [None]
  - Device related infection [None]
  - Skin ulcer [None]
  - Pyrexia [None]
  - Superinfection [None]
  - Drug withdrawal syndrome [None]
  - Muscle spasticity [None]
  - Depressed level of consciousness [None]
  - Tachypnoea [None]

NARRATIVE: CASE EVENT DATE: 20140501
